FAERS Safety Report 8311798-4 (Version None)
Quarter: 2012Q1

REPORT INFORMATION
  Report Type: 
  Country: None (occurrence: None)
  Receive Date: 20120315
  Receipt Date: 20110606
  Transmission Date: 20120608
  Serious: Yes (Other)
  Sender: FDA-Public Use
  Company Number: PHHY2011US44848

PATIENT
  Age: 54 Year
  Sex: Female

DRUGS (13)
  1. FENOFIBRATE [Concomitant]
  2. OXYCODONE HCL [Concomitant]
  3. AMITRIPTYLINE HCL [Concomitant]
  4. GABAPENTIN [Concomitant]
  5. LEVOTHYROXINE SODIUM [Concomitant]
  6. POTASSIUM CHLORIDE [Concomitant]
  7. METOPROLOL TARTRATE [Concomitant]
  8. WARFARIN SODIUM [Concomitant]
  9. GILENYA [Suspect]
     Indication: RELAPSING-REMITTING MULTIPLE SCLEROSIS
     Dosage: 0.5 MG, QD, ORAL
     Route: 048
     Dates: start: 20110406, end: 20110524
  10. FUROSEMIDE [Concomitant]
  11. OMEPRAZOLE [Concomitant]
  12. ACETAMINOPHEN [Concomitant]
  13. CRESTOR [Concomitant]

REACTIONS (2)
  - DRY MOUTH [None]
  - HERPES ZOSTER [None]
